FAERS Safety Report 12934642 (Version 1)
Quarter: 2016Q4

REPORT INFORMATION
  Report Type: Spontaneous
  Country: TR (occurrence: TR)
  Receive Date: 20161111
  Receipt Date: 20161111
  Transmission Date: 20170207
  Serious: Yes (Hospitalization)
  Sender: FDA-Public Use
  Company Number: TR-ALLERGAN-1675308US

PATIENT
  Age: 39 Year
  Sex: Female

DRUGS (1)
  1. BOTOX [Suspect]
     Active Substance: ONABOTULINUMTOXINA
     Indication: PRODUCT USED FOR UNKNOWN INDICATION
     Dosage: 44 UNITS, SINGLE
     Route: 030
     Dates: start: 20161104, end: 20161104

REACTIONS (7)
  - Speech disorder [Unknown]
  - Muscular weakness [Unknown]
  - Hypertonia [Unknown]
  - Vertigo [Unknown]
  - Asthenia [Unknown]
  - Somnolence [Unknown]
  - Dizziness [Unknown]

NARRATIVE: CASE EVENT DATE: 20161105
